FAERS Safety Report 6590337-2 (Version None)
Quarter: 2010Q1

REPORT INFORMATION
  Report Type: 
  Country: None (occurrence: None)
  Receive Date: 20100219
  Receipt Date: 20100209
  Transmission Date: 20100710
  Serious: Yes (Disabling, Other)
  Sender: FDA-Public Use
  Company Number: FR-KINGPHARMUSA00001-K201000105

PATIENT
  Age: 64 Year
  Sex: Male

DRUGS (5)
  1. ALTACE [Suspect]
     Indication: HYPERTENSION
     Dosage: 10 MG, QD
     Route: 048
     Dates: start: 20070101
  2. SIMVASTATIN [Concomitant]
  3. NIFEDIPINE [Concomitant]
     Indication: HYPERTENSION
  4. ASPIRIN [Concomitant]
     Indication: PROPHYLAXIS
  5. INSULIN [Concomitant]
     Indication: DIABETES MELLITUS
     Dosage: UNK
     Dates: start: 19700101

REACTIONS (9)
  - ABDOMINAL PAIN UPPER [None]
  - ANGINA PECTORIS [None]
  - CHEST PAIN [None]
  - DECREASED APPETITE [None]
  - FATIGUE [None]
  - GASTRITIS [None]
  - INSOMNIA [None]
  - VIRAL INFECTION [None]
  - VIRAL MYOCARDITIS [None]
